FAERS Safety Report 9530991 (Version 1)
Quarter: 2013Q2

REPORT INFORMATION
  Report Type: Spontaneous
  Country: US (occurrence: None)
  Receive Date: 20130429
  Receipt Date: 20130429
  Transmission Date: 20140414
  Serious: Yes (Hospitalization)
  Sender: FDA-Public Use
  Company Number: JPI-P-020547

PATIENT
  Sex: Female

DRUGS (1)
  1. LUVOX CR [Suspect]
     Indication: PRODUCT USED FOR UNKNOWN INDICATION
     Dosage: (UNKNOWN) , ORAL  UNKNOWN THERAPY DATES
     Route: 048

REACTIONS (4)
  - Serotonin syndrome [None]
  - Scratch [None]
  - Muscle twitching [None]
  - Tremor [None]
